FAERS Safety Report 6504909-4 (Version None)
Quarter: 2009Q4

REPORT INFORMATION
  Report Type: 
  Country: None (occurrence: None)
  Receive Date: 20091201
  Receipt Date: 20090529
  Transmission Date: 20100525
  Serious: Yes (Hospitalization)
  Sender: FDA-Public Use
  Company Number: 2008-181337-NL

PATIENT
  Age: 23 Year
  Sex: Female
  Weight: 97.5 kg

DRUGS (6)
  1. NUVARING [Suspect]
     Indication: DRUG USE FOR UNKNOWN INDICATION
     Dosage: VAG
     Route: 067
     Dates: start: 20060601, end: 20060725
  2. ZANTAC [Concomitant]
  3. PREVACID [Concomitant]
  4. PROTONIX [Concomitant]
  5. PRILOSEC [Concomitant]
  6. NEXIUM [Concomitant]

REACTIONS (1)
  - PULMONARY EMBOLISM [None]
